FAERS Safety Report 10696052 (Version 1)
Quarter: 2015Q1

REPORT INFORMATION
  Report Type: Spontaneous
  Country: US (occurrence: US)
  Receive Date: 20150107
  Receipt Date: 20150107
  Transmission Date: 20150721
  Serious: Yes (Other)
  Sender: FDA-Public Use
  Company Number: US-TEVA-532639USA

PATIENT
  Age: 51 Year
  Sex: Female

DRUGS (1)
  1. PRAVASTATIN [Suspect]
     Active Substance: PRAVASTATIN\PRAVASTATIN SODIUM
     Indication: BLOOD CHOLESTEROL INCREASED
     Dosage: FREQUENCY NOT PROVIDED
     Route: 048
     Dates: start: 2013

REACTIONS (2)
  - Rheumatoid arthritis [Unknown]
  - Coeliac disease [Unknown]

NARRATIVE: CASE EVENT DATE: 201401
